FAERS Safety Report 5871827-4 (Version None)
Quarter: 2008Q3

REPORT INFORMATION
  Report Type: 
  Country: None (occurrence: None)
  Receive Date: 20080905
  Receipt Date: 20071114
  Transmission Date: 20090109
  Serious: Yes (Other)
  Sender: FDA-Public Use
  Company Number: -BAXTER-2007BH008615

PATIENT
  Age: 48 Year
  Sex: Male
  Weight: 96 kg

DRUGS (2)
  1. GAMMAGARD LIQUID [Suspect]
     Indication: PRIMARY IMMUNODEFICIENCY SYNDROME
     Route: 041
     Dates: start: 20071024, end: 20071024
  2. AMOXICILLIN [Concomitant]
     Indication: PROPHYLAXIS
     Route: 048
     Dates: start: 20071012

REACTIONS (4)
  - CHEST DISCOMFORT [None]
  - ERYTHEMA [None]
  - HYPERHIDROSIS [None]
  - PALLOR [None]
